FAERS Safety Report 13754207 (Version 2)
Quarter: 2017Q3

REPORT INFORMATION
  Report Type: Spontaneous
  Country: DE (occurrence: DE)
  Receive Date: 20170714
  Receipt Date: 20170905
  Transmission Date: 20171127
  Serious: Yes (Other)
  Sender: FDA-Public Use
  Company Number: DE-009507513-1707DEU001530

PATIENT
  Age: 50 Year
  Sex: Male
  Weight: 46 kg

DRUGS (3)
  1. KEYTRUDA [Suspect]
     Active Substance: PEMBROLIZUMAB
     Indication: ADENOCARCINOMA GASTRIC
     Dosage: UNK
     Dates: start: 20160203
  2. KEYTRUDA [Suspect]
     Active Substance: PEMBROLIZUMAB
     Dosage: UNK
     Dates: start: 20160224
  3. KEYTRUDA [Suspect]
     Active Substance: PEMBROLIZUMAB
     Dosage: UNK
     Dates: start: 20160316

REACTIONS (6)
  - Malignant peritoneal neoplasm [Unknown]
  - Adenocarcinoma gastric [Unknown]
  - Faecaloma [Unknown]
  - Large intestinal stenosis [Unknown]
  - Product use in unapproved indication [Unknown]
  - Osteopenia [Unknown]

NARRATIVE: CASE EVENT DATE: 2016
